FAERS Safety Report 11444239 (Version 2)
Quarter: 2015Q4

REPORT INFORMATION
  Report Type: Report from Study
  Country: GB (occurrence: GB)
  Receive Date: 20150901
  Receipt Date: 20151028
  Transmission Date: 20160304
  Serious: Yes (Hospitalization)
  Sender: FDA-Public Use
  Company Number: GB-AMGEN-GBRSL2015088040

PATIENT
  Sex: Male

DRUGS (1)
  1. ARANESP [Suspect]
     Active Substance: DARBEPOETIN ALFA
     Indication: PRODUCT USED FOR UNKNOWN INDICATION
     Dosage: 100 MUG, QWK
     Route: 065

REACTIONS (4)
  - Diarrhoea [Unknown]
  - Full blood count decreased [Unknown]
  - Skin discolouration [Unknown]
  - Fistula [Unknown]

NARRATIVE: CASE EVENT DATE: 2015
